FAERS Safety Report 10222390 (Version 1)
Quarter: 2014Q2

REPORT INFORMATION
  Report Type: Spontaneous
  Country: KR (occurrence: KR)
  Receive Date: 20140606
  Receipt Date: 20140606
  Transmission Date: 20141212
  Serious: Yes (Death)
  Sender: FDA-Public Use
  Company Number: KR-JNJFOC-20140601949

PATIENT
  Sex: 0

DRUGS (3)
  1. REMICADE [Suspect]
     Indication: RHEUMATOID ARTHRITIS
     Dosage: INITIAL LOADING DOSE ON WEEK 0, 2 AND 6
     Route: 042
  2. FOLIC ACID [Concomitant]
     Dosage: MORE THAN 5 MG PER WEEK
     Route: 065
  3. MTX [Concomitant]
     Route: 065

REACTIONS (1)
  - Death [Fatal]
